FAERS Safety Report 8966819 (Version 1)
Quarter: 2012Q4

REPORT INFORMATION
  Report Type: 
  Country: BR (occurrence: BR)
  Receive Date: 20121217
  Receipt Date: 20121217
  Transmission Date: 20130627
  Serious: Yes (Other)
  Sender: FDA-Public Use
  Company Number: BR-PFIZER INC-2012315194

PATIENT
  Age: 63 Year
  Sex: Female
  Weight: 72 kg

DRUGS (4)
  1. LIPITOR [Suspect]
     Indication: HIGH CHOLESTEROL
     Dosage: UNK
     Route: 048
     Dates: end: 2010
  2. AMLODIPINE BESILATE [Concomitant]
     Indication: BLOOD PRESSURE ABNORMAL
     Dosage: one tablet, 1x/day
     Dates: start: 201205
  3. OMEPRAZOLE [Concomitant]
     Indication: PREVENTION
     Dosage: one tablet, 1x/day
     Dates: start: 201205
  4. OSCAL D [Concomitant]
     Indication: OSTEOPOROSIS
     Dosage: one tablet, 1x/day
     Dates: start: 201205

REACTIONS (2)
  - Breast cancer metastatic [Unknown]
  - Metastases to bone [Recovered/Resolved]
